FAERS Safety Report 4472410-8 (Version None)
Quarter: 2004Q4

REPORT INFORMATION
  Report Type: 
  Country: None (occurrence: None)
  Receive Date: 20041007
  Receipt Date: 20040929
  Transmission Date: 20050328
  Serious: Yes (Death)
  Sender: FDA-Public Use
  Company Number: 2004UW19780

PATIENT
  Age: 83 Year
  Sex: Female

DRUGS (4)
  1. SEROQUEL [Suspect]
     Dosage: 25 MG BID PO
     Route: 048
     Dates: start: 20040830
  2. ATIVAN [Concomitant]
  3. ARICEPT [Concomitant]
  4. ACE INHIBITOR [Concomitant]

REACTIONS (5)
  - CARDIAC DISORDER [None]
  - DEMENTIA [None]
  - FEELING ABNORMAL [None]
  - HYPERHIDROSIS [None]
  - RESUSCITATION [None]
